FAERS Safety Report 23751301 (Version 2)
Quarter: 2025Q2

REPORT INFORMATION
  Report Type: Spontaneous
  Country: DE (occurrence: DE)
  Receive Date: 20240417
  Receipt Date: 20250404
  Transmission Date: 20250716
  Serious: Yes (Hospitalization)
  Sender: SANDOZ
  Company Number: DE-ROCHE-3117796

PATIENT
  Age: 39 Year
  Sex: Male
  Weight: 100 kg

DRUGS (14)
  1. OCREVUS [Suspect]
     Active Substance: OCRELIZUMAB
     Route: 042
     Dates: start: 20190819
  2. OCREVUS [Suspect]
     Active Substance: OCRELIZUMAB
     Indication: Relapsing multiple sclerosis
     Route: 042
     Dates: start: 20190204, end: 20190218
  3. TERIFLUNOMIDE [Suspect]
     Active Substance: TERIFLUNOMIDE
     Indication: Relapsing multiple sclerosis
     Route: 048
     Dates: end: 20230827
  4. CHOLESTYRAMINE [Concomitant]
     Active Substance: CHOLESTYRAMINE
     Indication: Product used for unknown indication
     Route: 065
     Dates: start: 20230830, end: 20230910
  5. IBUPROFEN [Concomitant]
     Active Substance: IBUPROFEN
     Indication: Headache
     Dosage: 600.000MG QD
     Route: 065
     Dates: start: 20190506, end: 20190510
  6. Methylprednisolut [Concomitant]
     Indication: Product used for unknown indication
     Dosage: 1000.000MG QD
     Route: 065
     Dates: start: 20230302, end: 20230306
  7. PANTOPRAZOLE SODIUM [Concomitant]
     Active Substance: PANTOPRAZOLE SODIUM
     Indication: Product used for unknown indication
     Dosage: 40.000MG QD
     Route: 065
     Dates: start: 20230302, end: 20230306
  8. PREDNISOLONE [Concomitant]
     Active Substance: PREDNISOLONE
     Dosage: 20.000MG QD
     Route: 065
     Dates: start: 20230313, end: 20230314
  9. PREDNISOLONE [Concomitant]
     Active Substance: PREDNISOLONE
     Dosage: 20.000MG QOD
     Route: 065
     Dates: start: 20230311, end: 20230312
  10. PREDNISOLONE [Concomitant]
     Active Substance: PREDNISOLONE
     Indication: Product used for unknown indication
     Route: 065
     Dates: start: 20230307, end: 20230308
  11. PREDNISOLONE [Concomitant]
     Active Substance: PREDNISOLONE
     Route: 065
     Dates: start: 20230309, end: 20230310
  12. PREVNAR 13 [Concomitant]
     Active Substance: STREPTOCOCCUS PNEUMONIAE TYPE 1 CAPSULAR POLYSACCHARIDE DIPHTHERIA CRM197 PROTEIN CONJUGATE ANTIGEN\
     Indication: Product used for unknown indication
     Dosage: 0.500ML QD
     Route: 065
     Dates: start: 20230918, end: 20230918
  13. Vigantol [Concomitant]
     Indication: Product used for unknown indication
     Route: 065
     Dates: start: 201612, end: 202006
  14. ZOPICLONE [Concomitant]
     Active Substance: ZOPICLONE
     Indication: Product used for unknown indication
     Dosage: 7.500MG QD
     Route: 065
     Dates: start: 20230302, end: 20230306

REACTIONS (4)
  - Febrile neutropenia [Recovered/Resolved]
  - Anal abscess [Recovered/Resolved]
  - COVID-19 [Recovered/Resolved]
  - Hyponatraemia [Recovered/Resolved]

NARRATIVE: CASE EVENT DATE: 20220518
